FAERS Safety Report 8018003-7 (Version None)
Quarter: 2012Q1

REPORT INFORMATION
  Report Type: 
  Country: None (occurrence: None)
  Receive Date: 20120103
  Receipt Date: 20111222
  Transmission Date: 20120608
  Serious: Yes (Other)
  Sender: FDA-Public Use
  Company Number: US-BAYER-2011-123160

PATIENT
  Sex: Female

DRUGS (2)
  1. YAZ [Suspect]
     Dosage: UNK
     Route: 048
     Dates: start: 20080804, end: 20080923
  2. YASMIN [Suspect]
     Dosage: UNK
     Route: 048
     Dates: start: 20080804, end: 20080923

REACTIONS (5)
  - INJURY [None]
  - PAIN [None]
  - PULMONARY EMBOLISM [None]
  - GALLBLADDER INJURY [None]
  - DEEP VEIN THROMBOSIS [None]
